FAERS Safety Report 4574751-2 (Version None)
Quarter: 2005Q1

REPORT INFORMATION
  Report Type: 
  Country: None (occurrence: None)
  Receive Date: 20050208
  Receipt Date: 20040608
  Transmission Date: 20050727
  Serious: No
  Sender: FDA-Public Use
  Company Number: US-GLAXOSMITHKLINE-A0513799A

PATIENT
  Age: 26 Year
  Sex: Female
  Weight: 59.1 kg

DRUGS (3)
  1. PAXIL CR [Suspect]
     Indication: DEPRESSION
     Dosage: 25MG PER DAY
     Route: 048
     Dates: start: 20040514
  2. NEURONTIN [Concomitant]
     Dosage: 100MG THREE TIMES PER DAY
     Route: 048
     Dates: start: 20040519, end: 20040611
  3. KLONOPIN [Concomitant]
     Dosage: .5MG TWICE PER DAY
     Route: 048
     Dates: start: 20040507, end: 20040617

REACTIONS (2)
  - OEDEMA PERIPHERAL [None]
  - SWELLING FACE [None]
